FAERS Safety Report 7825386-7 (Version None)
Quarter: 2011Q4

REPORT INFORMATION
  Report Type: 
  Country: None (occurrence: None)
  Receive Date: 20111019
  Receipt Date: 20111013
  Transmission Date: 20120403
  Serious: Yes (Congenital Anomaly)
  Sender: FDA-Public Use
  Company Number: PHHY2011US90219

PATIENT

DRUGS (3)
  1. TOPIRAMATE [Suspect]
     Dosage: MATERNAL DOSE: 400 MG
     Route: 064
  2. PHENYTOIN [Suspect]
     Dosage: MATERNAL DOSE: 500 MG
     Route: 064
  3. CARBAMAZEPINE [Suspect]
     Dosage: MATERNAL DOSE : 1000 MG
     Route: 064

REACTIONS (7)
  - PULMONARY MALFORMATION [None]
  - BRAIN MALFORMATION [None]
  - MATERNAL EXPOSURE DURING PREGNANCY [None]
  - SYNDACTYLY [None]
  - HEART DISEASE CONGENITAL [None]
  - ABORTION INDUCED [None]
  - MATERNAL DRUGS AFFECTING FOETUS [None]
